FAERS Safety Report 5210709-8 (Version None)
Quarter: 2007Q1

REPORT INFORMATION
  Report Type: 
  Country: None (occurrence: None)
  Receive Date: 20070116
  Receipt Date: 20070116
  Transmission Date: 20070707
  Serious: Yes (Hospitalization)
  Sender: FDA-Public Use
  Company Number: None

PATIENT
  Sex: Female
  Weight: 97.5234 kg

DRUGS (6)
  1. GEODON [Suspect]
     Dosage: 160 MG  HS  PO
     Route: 048
  2. TOPAMAX [Concomitant]
  3. ALPRAZOLAM [Concomitant]
  4. CYMBALTA [Concomitant]
  5. LITHIUM CARBONATE [Concomitant]
  6. PHENERGAN [Concomitant]

REACTIONS (3)
  - FACIAL PALSY [None]
  - SYNCOPE [None]
  - TARDIVE DYSKINESIA [None]
